FAERS Safety Report 5750132-0 (Version None)
Quarter: 2008Q2

REPORT INFORMATION
  Report Type: 
  Country: None (occurrence: None)
  Receive Date: 20080527
  Receipt Date: 20080515
  Transmission Date: 20081010
  Serious: Yes (Other)
  Sender: FDA-Public Use
  Company Number: BR-PFIZER INC-2008035013

PATIENT
  Sex: Female
  Weight: 41 kg

DRUGS (2)
  1. CHANTIX [Suspect]
     Indication: TOBACCO USER
     Route: 048
     Dates: start: 20080401, end: 20080401
  2. CONTRACEPTIVE, UNSPECIFIED [Concomitant]
     Route: 048

REACTIONS (6)
  - DIZZINESS [None]
  - FATIGUE [None]
  - MALAISE [None]
  - MOTOR DYSFUNCTION [None]
  - NAUSEA [None]
  - SLEEP DISORDER [None]
